FAERS Safety Report 5246776-5 (Version None)
Quarter: 2007Q1

REPORT INFORMATION
  Report Type: 
  Country: None (occurrence: None)
  Receive Date: 20070220
  Receipt Date: 20070206
  Transmission Date: 20070707
  Serious: Yes (Hospitalization)
  Sender: FDA-Public Use
  Company Number: MEDI-0005414

PATIENT
  Age: 63 Year
  Sex: Female
  Weight: 62.3 kg

DRUGS (5)
  1. ETHYOL [Suspect]
     Indication: NEUROPATHY
     Dosage: 500 MG, 3 IN 1 D, SUBCUTANEOUS
     Route: 058
     Dates: start: 20051114, end: 20051222
  2. ETHYOL [Suspect]
     Indication: NEUROPATHY
     Dosage: 500 MG, 3 IN 1 D, SUBCUTANEOUS
     Route: 058
     Dates: start: 20051223
  3. PREDNISONE TAB [Concomitant]
  4. LEVAQUINON (LEVOFLOXACIN) [Concomitant]
  5. PACLITAXEL [Concomitant]

REACTIONS (1)
  - SEPTIC ARTHRITIS STAPHYLOCOCCAL [None]
